FAERS Safety Report 21433755 (Version 1)
Quarter: 2022Q4

REPORT INFORMATION
  Report Type: Spontaneous
  Country: US (occurrence: US)
  Receive Date: 20221010
  Receipt Date: 20221010
  Transmission Date: 20230113
  Serious: Yes (Life-Threatening, Other)
  Sender: FDA-Public Use
  Company Number: US-SUN PHARMACEUTICAL INDUSTRIES LTD-2022R1-326195

PATIENT
  Age: 39 Year
  Sex: Female

DRUGS (1)
  1. AMLODIPINE [Suspect]
     Active Substance: AMLODIPINE BESYLATE
     Indication: Product used for unknown indication
     Dosage: AT LEAST 300 MILLIGRAM
     Route: 065

REACTIONS (3)
  - Intentional overdose [Unknown]
  - Non-cardiogenic pulmonary oedema [Recovered/Resolved]
  - Hypotension [Recovered/Resolved]
